FAERS Safety Report 7914784-9 (Version None)
Quarter: 2011Q4

REPORT INFORMATION
  Report Type: 
  Country: None (occurrence: None)
  Receive Date: 20111115
  Receipt Date: 20111110
  Transmission Date: 20120403
  Serious: Yes (Other)
  Sender: FDA-Public Use
  Company Number: PHHY2011CA91955

PATIENT
  Sex: Female

DRUGS (5)
  1. DIURETICS [Concomitant]
  2. ZOLEDRONOC ACID [Suspect]
     Indication: OSTEOPOROSIS
     Dosage: 5 MG, UNK
     Route: 042
     Dates: start: 20090902
  3. CALCIUM [Concomitant]
  4. ACE INHIBITORS [Concomitant]
  5. ZOLEDRONOC ACID [Suspect]
     Dosage: 5 MG, UNK
     Route: 042
     Dates: start: 20101116

REACTIONS (2)
  - RENAL FAILURE CHRONIC [None]
  - CREATININE RENAL CLEARANCE DECREASED [None]
